FAERS Safety Report 9910405 (Version 1)
Quarter: 2014Q1

REPORT INFORMATION
  Report Type: Spontaneous
  Country: GB (occurrence: GB)
  Receive Date: 20140219
  Receipt Date: 20140219
  Transmission Date: 20141002
  Serious: Yes (Other)
  Sender: FDA-Public Use
  Company Number: GB-TEVA-461148ISR

PATIENT
  Age: 62 Year
  Sex: Male
  Weight: 106 kg

DRUGS (8)
  1. TRAMADOL [Suspect]
     Dates: start: 20140110
  2. ALLOPURINOL [Concomitant]
     Dates: start: 20131101
  3. CO-CODAMOL [Concomitant]
     Dates: start: 20131101
  4. FOLIC ACID [Concomitant]
     Dates: start: 20131101
  5. THIAMINE [Concomitant]
     Dates: start: 20131101
  6. VIAZEM XL [Concomitant]
     Dates: start: 20131101
  7. VITAMIN B SUBSTANCES [Concomitant]
     Dates: start: 20131101
  8. GABAPENTIN [Concomitant]
     Dates: start: 20140110

REACTIONS (5)
  - Hypomania [Recovered/Resolved]
  - Abdominal discomfort [Recovered/Resolved]
  - Dizziness [Recovered/Resolved]
  - Paraesthesia [Recovered/Resolved]
  - Euphoric mood [Unknown]
